APPROVED DRUG PRODUCT: THEO-DUR
Active Ingredient: THEOPHYLLINE
Strength: 300MG **Federal Register determination that product was not discontinued or withdrawn for safety or effectiveness reasons**
Dosage Form/Route: TABLET, EXTENDED RELEASE;ORAL
Application: A085328 | Product #002
Applicant: SCHERING CORP
Approved: Approved Prior to Jan 1, 1982 | RLD: Yes | RS: No | Type: DISCN